FAERS Safety Report 17055106 (Version 5)
Quarter: 2022Q1

REPORT INFORMATION
  Report Type: Spontaneous
  Country: US (occurrence: US)
  Receive Date: 20191120
  Receipt Date: 20220114
  Transmission Date: 20220423
  Serious: Yes (Other)
  Sender: FDA-Public Use
  Company Number: US-PURDUE-USA-2019-0149157

PATIENT
  Sex: Male
  Weight: 63.492 kg

DRUGS (5)
  1. OXYCONTIN [Suspect]
     Active Substance: OXYCODONE HYDROCHLORIDE
     Indication: Product used for unknown indication
     Dosage: UNK
     Route: 048
     Dates: start: 1997
  2. OXYCONTIN [Suspect]
     Active Substance: OXYCODONE HYDROCHLORIDE
     Dosage: 80 MG, TID
     Route: 048
  3. ACETAMINOPHEN\HYDROCODONE BITARTRATE [Suspect]
     Active Substance: ACETAMINOPHEN\HYDROCODONE BITARTRATE
     Indication: Pain
     Dosage: 7.5/325 MG, QID
     Route: 048
  4. ACETAMINOPHEN\HYDROCODONE BITARTRATE [Suspect]
     Active Substance: ACETAMINOPHEN\HYDROCODONE BITARTRATE
     Indication: Breakthrough pain
  5. ACETAMINOPHEN\OXYCODONE HYDROCHLORIDE [Suspect]
     Active Substance: ACETAMINOPHEN\OXYCODONE HYDROCHLORIDE
     Indication: Pain
     Dosage: 7.5/325 MG, QID
     Route: 048

REACTIONS (11)
  - Tooth fracture [Unknown]
  - Tooth loss [Unknown]
  - Drug dependence [Unknown]
  - Choking [Unknown]
  - Drug withdrawal syndrome [Unknown]
  - Mastication disorder [Unknown]
  - Mental disorder [Unknown]
  - Toothache [Unknown]
  - Dental caries [Unknown]
  - Visual impairment [Unknown]
  - Stomatitis [Unknown]

NARRATIVE: CASE EVENT DATE: 19960101
